FAERS Safety Report 7978215-5 (Version None)
Quarter: 2011Q4

REPORT INFORMATION
  Report Type: 
  Country: None (occurrence: None)
  Receive Date: 20111207
  Receipt Date: 20111124
  Transmission Date: 20120403
  Serious: Yes (Death)
  Sender: FDA-Public Use
  Company Number: WAES 1111USA03597

PATIENT
  Age: 61 Year
  Sex: Male

DRUGS (6)
  1. RASILEZ [Concomitant]
  2. AMARYL [Concomitant]
  3. DIOVAN [Concomitant]
  4. LIPITOR [Concomitant]
  5. METFORMIN HCL [Concomitant]
  6. JANUVIA [Suspect]
     Indication: TYPE 2 DIABETES MELLITUS
     Dosage: 25 MG/DAILY PO
     Route: 048
     Dates: start: 20101031

REACTIONS (1)
  - HYPERTENSION [None]
